FAERS Safety Report 9083953 (Version 1)
Quarter: 2013Q1

REPORT INFORMATION
  Report Type: Report from Study
  Country: US (occurrence: US)
  Receive Date: 20130130
  Receipt Date: 20130130
  Transmission Date: 20140127
  Serious: No
  Sender: FDA-Public Use
  Company Number: US-ABBOTT-12P-163-0984194-00

PATIENT
  Age: 68 Year
  Sex: Female

DRUGS (1)
  1. HUMIRA [Suspect]
     Indication: PSORIATIC ARTHROPATHY
     Route: 058
     Dates: start: 20120509

REACTIONS (9)
  - Cafe au lait spots [Unknown]
  - Abdominal discomfort [Unknown]
  - Injection site pain [Unknown]
  - Cafe au lait spots [Unknown]
  - Cafe au lait spots [Unknown]
  - Weight increased [Unknown]
  - Onychoclasis [Unknown]
  - Hot flush [Unknown]
  - Alopecia [Unknown]
